FAERS Safety Report 4430571-0 (Version None)
Quarter: 2004Q3

REPORT INFORMATION
  Report Type: 
  Country: None (occurrence: None)
  Receive Date: 20040818
  Receipt Date: 20040803
  Transmission Date: 20050211
  Serious: Yes (Death, Hospitalization)
  Sender: FDA-Public Use
  Company Number: THYR-10185

PATIENT
  Age: 76 Year
  Sex: Female

DRUGS (2)
  1. THYROGEN [Suspect]
     Indication: DIAGNOSTIC PROCEDURE
     Dosage: 0.9 MG QD IM
     Dates: start: 20010801, end: 20010801
  2. THYROGEN [Suspect]
     Indication: DIAGNOSTIC PROCEDURE
     Dosage: 0.9 MG QD IM
     Dates: start: 20020101, end: 20020101

REACTIONS (4)
  - ANTI-THYROID ANTIBODY POSITIVE [None]
  - COMPUTERISED TOMOGRAM ABNORMAL [None]
  - HYPOCALCAEMIA [None]
  - THYROGLOBULIN INCREASED [None]
